FAERS Safety Report 9101750 (Version 2)
Quarter: 2013Q3

REPORT INFORMATION
  Report Type: Spontaneous
  Country: US (occurrence: US)
  Receive Date: 20130218
  Receipt Date: 20130924
  Transmission Date: 20140515
  Serious: No
  Sender: FDA-Public Use
  Company Number: US-009507513-1301USA014789

PATIENT
  Age: 55 Year
  Sex: Female

DRUGS (2)
  1. PEGINTRON [Suspect]
     Indication: HEPATITIS C
     Dosage: UNK
     Dates: start: 20130125
  2. REBETOL [Suspect]
     Indication: HEPATITIS C
     Dosage: UNK
     Dates: start: 20130125

REACTIONS (10)
  - Musculoskeletal stiffness [Unknown]
  - Nasopharyngitis [Unknown]
  - Pain [Unknown]
  - Pollakiuria [Unknown]
  - Decreased appetite [Unknown]
  - Influenza like illness [Unknown]
  - Skin depigmentation [Unknown]
  - Chills [Unknown]
  - Skin warm [Unknown]
  - Nervousness [Unknown]
